FAERS Safety Report 9918946 (Version 3)
Quarter: 2014Q2

REPORT INFORMATION
  Report Type: Spontaneous
  Country: DE (occurrence: DE)
  Receive Date: 20140224
  Receipt Date: 20140526
  Transmission Date: 20141212
  Serious: Yes (Life-Threatening, Other)
  Sender: FDA-Public Use
  Company Number: DE-UCBSA-112957

PATIENT
  Age: 82 Year
  Sex: Female
  Weight: 69 kg

DRUGS (2)
  1. VIMPAT [Suspect]
     Indication: EPILEPSY
     Dosage: ^DAILY DOSE: 100 MG MILLGRAM(S) EVERY DAYS^ [ 600 MG MILLIGRAM(S) { 100 MG MILLIGRAM(S), 1 IN 1 DAY}
     Route: 048
     Dates: start: 20140123, end: 20140128
  2. AMOCLAV [Concomitant]
     Indication: PNEUMONIA
     Dosage: AMOCLAV 875.1-0-1
     Route: 048
     Dates: start: 20140122, end: 20140128

REACTIONS (3)
  - Blood creatinine increased [Unknown]
  - Infection [Unknown]
  - Renal failure [Unknown]
